FAERS Safety Report 10585674 (Version 1)
Quarter: 2014Q4

REPORT INFORMATION
  Report Type: Spontaneous
  Country: NO (occurrence: NO)
  Receive Date: 20141114
  Receipt Date: 20141114
  Transmission Date: 20150529
  Serious: Yes (Other)
  Sender: FDA-Public Use
  Company Number: NO-ACTAVIS-2014-24332

PATIENT
  Sex: Female

DRUGS (1)
  1. DIAZEPAM (UNKNOWN) [Suspect]
     Active Substance: DIAZEPAM
     Indication: PRODUCT USED FOR UNKNOWN INDICATION
     Dosage: UNKNOWN
     Route: 065

REACTIONS (3)
  - Illusion [Unknown]
  - Drug diversion [Unknown]
  - Amnesia [Unknown]
